FAERS Safety Report 18945253 (Version 2)
Quarter: 2021Q4

REPORT INFORMATION
  Report Type: Report from Study
  Country: CN (occurrence: CN)
  Receive Date: 20210226
  Receipt Date: 20211004
  Transmission Date: 20220303
  Serious: Yes (Hospitalization)
  Sender: FDA-Public Use
  Company Number: CN-DSJP-DSJ-2021-105579

PATIENT
  Age: 68 Year
  Sex: Male
  Weight: 70 kg

DRUGS (31)
  1. AMLODIPINE BESYLATE\OLMESARTAN MEDOXOMIL [Suspect]
     Active Substance: AMLODIPINE BESYLATE\OLMESARTAN MEDOXOMIL
     Indication: Essential hypertension
     Dosage: 20/5MG, DAY
     Route: 048
     Dates: start: 20201224, end: 20210206
  2. SODIUM ESCINATE [Concomitant]
     Active Substance: SODIUM ESCINATE
     Indication: Reduction of increased intracranial pressure
     Dosage: 10 MG, QD
     Route: 041
     Dates: start: 20210206, end: 20210207
  3. SODIUM ESCINATE [Concomitant]
     Active Substance: SODIUM ESCINATE
     Indication: Dehydration
  4. NALOXONE HYDROCHLORIDE [Concomitant]
     Active Substance: NALOXONE HYDROCHLORIDE
     Indication: Anaesthesia
     Dosage: 2.4 MG, QD
     Route: 041
     Dates: start: 20210206, end: 20210207
  5. PIRACETAM [Concomitant]
     Active Substance: PIRACETAM
     Indication: Reduction of increased intracranial pressure
     Dosage: 20 MG, QD
     Route: 041
     Dates: start: 20210206, end: 20210207
  6. PIRACETAM [Concomitant]
     Active Substance: PIRACETAM
     Indication: Dehydration
  7. AO LI XI [Concomitant]
     Indication: Central nervous system stimulation
     Dosage: 0.3 G, QD
     Route: 030
     Dates: start: 20210206, end: 20210220
  8. ATORVASTATIN CALCIUM [Concomitant]
     Active Substance: ATORVASTATIN CALCIUM
     Indication: Lipids
     Dosage: 20 MG, QN
     Route: 048
     Dates: start: 20210206, end: 20210220
  9. ATORVASTATIN CALCIUM [Concomitant]
     Active Substance: ATORVASTATIN CALCIUM
     Indication: Arteriosclerosis
  10. AMLODIPINE BESYLATE [Concomitant]
     Active Substance: AMLODIPINE BESYLATE
     Indication: Blood pressure management
     Dosage: 5 MG, QD
     Route: 048
     Dates: start: 20210206, end: 20210220
  11. AI XIN YI NING [Concomitant]
     Indication: Upper respiratory tract infection
     Dosage: 20 MG, QD
     Route: 041
     Dates: start: 20210206, end: 20210220
  12. ASPIRIN [Concomitant]
     Active Substance: ASPIRIN
     Indication: Antiplatelet therapy
     Dosage: 100MG, QN
     Route: 048
     Dates: start: 20210207, end: 20210220
  13. BUTYLPHTHALIDE [Concomitant]
     Active Substance: BUTYLPHTHALIDE
     Indication: Collateral circulation
     Dosage: 125 MG, BID
     Route: 041
     Dates: start: 20210207, end: 20210211
  14. BUTYLPHTHALIDE [Concomitant]
     Active Substance: BUTYLPHTHALIDE
     Indication: Central nervous system stimulation
     Dosage: 125 MG, QD
     Route: 041
     Dates: start: 20210212, end: 20210220
  15. SODIUM CHLORIDE [Concomitant]
     Active Substance: SODIUM CHLORIDE
     Indication: Central nervous system stimulation
     Dosage: 125 MG, BID
     Route: 041
     Dates: start: 20210207, end: 20210211
  16. SODIUM CHLORIDE [Concomitant]
     Active Substance: SODIUM CHLORIDE
     Indication: Central nervous system stimulation
     Dosage: 125 MG, BID
     Route: 041
     Dates: start: 20210212, end: 20210220
  17. TROXERUTIN [Concomitant]
     Active Substance: TROXERUTIN
     Indication: Reduction of increased intracranial pressure
     Dosage: 360 MG, QD
     Route: 041
     Dates: start: 20210208, end: 20210220
  18. TROXERUTIN [Concomitant]
     Active Substance: TROXERUTIN
     Indication: Dehydration
  19. HERBALS\PANAX NOTOGINSENG ROOT EXTRACT [Concomitant]
     Active Substance: HERBALS\PANAX NOTOGINSENG ROOT EXTRACT
     Indication: Volume blood increased
     Dosage: 0.25 G, QD
     Route: 041
     Dates: start: 20210207, end: 20210211
  20. HERBALS\PANAX NOTOGINSENG ROOT EXTRACT [Concomitant]
     Active Substance: HERBALS\PANAX NOTOGINSENG ROOT EXTRACT
     Indication: Peripheral venous disease
  21. HERBALS\PANAX NOTOGINSENG ROOT EXTRACT [Concomitant]
     Active Substance: HERBALS\PANAX NOTOGINSENG ROOT EXTRACT
     Indication: Collateral circulation
  22. Gu Li Ya [Concomitant]
     Indication: Reduction of increased intracranial pressure
     Dosage: 250 ML, QD
     Route: 041
     Dates: start: 20210208, end: 20210220
  23. Gu Li Ya [Concomitant]
     Indication: Dehydration
  24. BETAHISTINE MESILATE [Concomitant]
     Active Substance: BETAHISTINE MESILATE
     Indication: Dizziness
     Dosage: 6 MG, TID
     Route: 048
     Dates: start: 20210208, end: 20210220
  25. CEFPROZIL [Concomitant]
     Active Substance: CEFPROZIL
     Indication: Upper respiratory tract infection
     Dosage: 250 MG, BID
     Route: 048
     Dates: start: 20210208, end: 20210220
  26. METHYLCOBALAMIN [Concomitant]
     Active Substance: METHYLCOBALAMIN
     Indication: Central nervous system stimulation
     Dosage: 0.5 MG, TID
     Route: 048
     Dates: start: 20210208, end: 20210220
  27. DUPHALAC [Concomitant]
     Active Substance: LACTULOSE
     Indication: Gastrointestinal disorder
     Dosage: 1 DF, TID
     Route: 048
     Dates: start: 20210212, end: 20210220
  28. ACARBOSE [Concomitant]
     Active Substance: ACARBOSE
     Indication: Blood glucose abnormal
     Dosage: 50 MG, TID
     Route: 048
     Dates: start: 20210213, end: 20210220
  29. BUTYLPHTHALIDE [Concomitant]
     Active Substance: BUTYLPHTHALIDE
     Indication: Central nervous system stimulation
     Dosage: 200 MG, TID
     Route: 048
     Dates: start: 20210221
  30. ACARBOSE [Concomitant]
     Active Substance: ACARBOSE
     Indication: Blood glucose abnormal
     Dosage: 50 MG, QD
     Route: 048
     Dates: start: 20210221
  31. NIFEDIPINE [Concomitant]
     Active Substance: NIFEDIPINE
     Indication: Blood pressure management
     Dosage: 30 MG, QD
     Route: 048
     Dates: start: 20210221

REACTIONS (3)
  - Cerebral infarction [Recovering/Resolving]
  - Upper respiratory tract infection [Recovering/Resolving]
  - Type 2 diabetes mellitus [Recovering/Resolving]

NARRATIVE: CASE EVENT DATE: 20210206
